FAERS Safety Report 7604271-X (Version None)
Quarter: 2011Q3

REPORT INFORMATION
  Report Type: 
  Country: None (occurrence: None)
  Receive Date: 20110712
  Receipt Date: 20110627
  Transmission Date: 20111222
  Serious: Yes (Other)
  Sender: FDA-Public Use
  Company Number: US-WATSON-2011-10174

PATIENT

DRUGS (2)
  1. HYDROMORPHONE HYDROCHLORIDE [Suspect]
     Route: 065
  2. METHADONE HCL [Suspect]
     Indication: PAIN
     Route: 048

REACTIONS (2)
  - DRUG INEFFECTIVE [None]
  - HYPERAESTHESIA [None]
